FAERS Safety Report 15283479 (Version 6)
Quarter: 2019Q1

REPORT INFORMATION
  Report Type: Spontaneous
  Country: US (occurrence: US)
  Receive Date: 20180816
  Receipt Date: 20190122
  Transmission Date: 20190417
  Serious: No
  Sender: FDA-Public Use
  Company Number: US-PFIZER INC-2018329565

PATIENT
  Age: 63 Year
  Sex: Female

DRUGS (2)
  1. XELJANZ [Suspect]
     Active Substance: TOFACITINIB CITRATE
     Dosage: 5 MG, 2X/DAY
     Dates: start: 20180516, end: 20181019
  2. XELJANZ [Suspect]
     Active Substance: TOFACITINIB CITRATE
     Indication: RHEUMATOID ARTHRITIS
     Dosage: 5 MG, 2X/DAY
     Route: 048
     Dates: start: 20180517, end: 20181120

REACTIONS (12)
  - Malaise [Unknown]
  - Hyperhidrosis [Unknown]
  - Drug ineffective [Unknown]
  - Dizziness [Unknown]
  - Memory impairment [Unknown]
  - Skin disorder [Unknown]
  - Hyperhidrosis [Not Recovered/Not Resolved]
  - Skin fragility [Unknown]
  - Visual impairment [Unknown]
  - Vitamin D decreased [Unknown]
  - Product dose omission [Unknown]
  - Photosensitivity reaction [Unknown]

NARRATIVE: CASE EVENT DATE: 2018
